FAERS Safety Report 9132050 (Version 3)
Quarter: 2013Q2

REPORT INFORMATION
  Report Type: Spontaneous
  Country: US (occurrence: US)
  Receive Date: 20130301
  Receipt Date: 20130522
  Transmission Date: 20140414
  Serious: Yes (Other)
  Sender: FDA-Public Use
  Company Number: US-JNJFOC-20130212801

PATIENT
  Age: 26 Year
  Sex: Female

DRUGS (3)
  1. XARELTO [Suspect]
     Indication: THROMBOSIS PROPHYLAXIS
     Route: 048
     Dates: start: 20121212
  2. COUMADIN [Concomitant]
     Indication: DEEP VEIN THROMBOSIS
     Route: 065
  3. CELEXA [Concomitant]
     Indication: DEPRESSION
     Route: 048
     Dates: start: 20120430

REACTIONS (1)
  - Thrombophlebitis superficial [Recovered/Resolved]
